FAERS Safety Report 9447260 (Version 1)
Quarter: 2013Q3

REPORT INFORMATION
  Report Type: Spontaneous
  Country: TR (occurrence: TR)
  Receive Date: 20130808
  Receipt Date: 20130808
  Transmission Date: 20140515
  Serious: Yes (Hospitalization, Other)
  Sender: FDA-Public Use
  Company Number: TR-ROCHE-1258111

PATIENT
  Age: 79 Year
  Sex: Male

DRUGS (10)
  1. LUCENTIS [Suspect]
     Indication: AGE-RELATED MACULAR DEGENERATION
     Dosage: 0.5 MG, IN 0.05 ML
     Route: 050
  2. PROPARACAINE [Concomitant]
     Dosage: 0.5%
     Route: 061
  3. POVIDONE IODINE [Concomitant]
     Dosage: 5%
     Route: 061
  4. VIGAMOX [Concomitant]
     Dosage: HOURLY IN THE FIRST DAY AND SUBSEQUENTLY FOUR TIMES A DAY FOR ONE WEEK
     Route: 061
  5. VANCOMYCIN [Concomitant]
     Route: 050
  6. CEFTAZIDIME [Concomitant]
     Route: 050
  7. CEFAZOLIN [Concomitant]
  8. GENTAMICIN [Concomitant]
  9. CYCLOPENTOLATE HYDROCHLORIDE [Concomitant]
     Route: 061
  10. AMIKACIN [Concomitant]

REACTIONS (14)
  - Conjunctival oedema [Unknown]
  - Blindness [Unknown]
  - Hypopyon [Unknown]
  - Eye pain [Unknown]
  - Ocular hyperaemia [Unknown]
  - Eyelid oedema [Unknown]
  - Conjunctival hyperaemia [Unknown]
  - Vitreous disorder [Unknown]
  - Retinal detachment [Unknown]
  - Endophthalmitis [Unknown]
  - Corneal opacity [Unknown]
  - Hypotony of eye [Not Recovered/Not Resolved]
  - Acinetobacter infection [Unknown]
  - Visual acuity reduced [Unknown]
